FAERS Safety Report 9191336 (Version 1)
Quarter: 2013Q1

REPORT INFORMATION
  Report Type: Spontaneous
  Country: US (occurrence: US)
  Receive Date: 20130326
  Receipt Date: 20130326
  Transmission Date: 20140127
  Serious: No
  Sender: FDA-Public Use
  Company Number: US-ASTRAZENECA-2013SE14932

PATIENT
  Age: 46 Year
  Sex: Female

DRUGS (1)
  1. PRILOSEC [Suspect]
     Indication: GASTROOESOPHAGEAL REFLUX DISEASE
     Route: 048
     Dates: start: 20120125

REACTIONS (3)
  - Autonomic neuropathy [Unknown]
  - Radiculitis lumbosacral [Unknown]
  - Arthralgia [Unknown]
